FAERS Safety Report 21050051 (Version 1)
Quarter: 2022Q3

REPORT INFORMATION
  Report Type: Spontaneous
  Country: US (occurrence: US)
  Receive Date: 20220706
  Receipt Date: 20220706
  Transmission Date: 20221026
  Serious: No
  Sender: FDA-Public Use
  Company Number: US-009507513-2207USA000201

PATIENT
  Age: 54 Year
  Sex: Female

DRUGS (3)
  1. MOLNUPIRAVIR [Suspect]
     Active Substance: MOLNUPIRAVIR
     Indication: COVID-19 treatment
     Dosage: 800 MILLIGRAM/FOUR 200 MG CAPSULES TWICE A DAY
     Route: 048
     Dates: start: 20220626
  2. DILTIAZEM [Concomitant]
     Active Substance: DILTIAZEM
  3. DOFETILIDE [Concomitant]
     Active Substance: DOFETILIDE

REACTIONS (1)
  - Rash pruritic [Not Recovered/Not Resolved]

NARRATIVE: CASE EVENT DATE: 20220630
